FAERS Safety Report 14971810 (Version 13)
Quarter: 2021Q4

REPORT INFORMATION
  Report Type: Report from Study
  Country: NL (occurrence: NL)
  Receive Date: 20180605
  Receipt Date: 20211213
  Transmission Date: 20220304
  Serious: Yes (Hospitalization, Other)
  Sender: FDA-Public Use
  Company Number: NL-ABBVIE-16P-114-1626860-00

PATIENT
  Sex: Male
  Weight: 78 kg

DRUGS (12)
  1. CARBIDOPA\LEVODOPA [Suspect]
     Active Substance: CARBIDOPA\LEVODOPA
     Indication: Parkinson^s disease
     Dosage: MD: 16, CD:  6, ED: 3, ND: 5.2
     Route: 050
     Dates: start: 20130114
  2. CARBIDOPA\LEVODOPA [Suspect]
     Active Substance: CARBIDOPA\LEVODOPA
     Dosage: MD: 15.0 ML, CD: 5.8 ML , ED: 3.0 ML, NIGHT: CD 5.2, ED 3.0
     Route: 050
  3. CARBIDOPA\LEVODOPA [Suspect]
     Active Substance: CARBIDOPA\LEVODOPA
     Dosage: MD: 15 CD: 5.8 ED: 3 CND 5.2 ML/H; END 3.0 ML
     Route: 050
  4. CARBIDOPA\LEVODOPA [Suspect]
     Active Substance: CARBIDOPA\LEVODOPA
     Dosage: MD 15.0 ML; CD 5.8 ML/H; ED 3.0 ML; CND 5.2 ML/H; END 3.0 ML ?REMAINED AT 24 HOURS
     Route: 050
  5. OMEPRAZOLE [Concomitant]
     Active Substance: OMEPRAZOLE
     Indication: Product used for unknown indication
     Route: 065
  6. DEVARON [Concomitant]
     Indication: Product used for unknown indication
     Route: 065
  7. CALCIUM CARBONATE CHOLECALCIFEROLE [Concomitant]
     Indication: Product used for unknown indication
     Route: 065
  8. CARBASALATE CALCIUM CARDIO [Concomitant]
     Indication: Product used for unknown indication
     Dosage: 1 SACHET
     Route: 065
  9. HYDROXOCOBALAMIN HYDROCHLORIDE [Concomitant]
     Active Substance: HYDROXOCOBALAMIN HYDROCHLORIDE
     Indication: Product used for unknown indication
     Dosage: ON MONDAY AND THURSDAY
     Route: 065
  10. FOLIC ACID [Concomitant]
     Active Substance: FOLIC ACID
     Indication: Product used for unknown indication
     Route: 065
  11. VITAMIN B12 [Concomitant]
     Active Substance: CYANOCOBALAMIN
     Indication: Product used for unknown indication
  12. CALCI CHEW [Concomitant]
     Indication: Product used for unknown indication

REACTIONS (40)
  - Orchidectomy [Recovered/Resolved]
  - Off label use [Not Recovered/Not Resolved]
  - Nocturia [Recovered/Resolved]
  - Bladder disorder [Not Recovered/Not Resolved]
  - Vitamin B12 decreased [Not Recovered/Not Resolved]
  - Fibroma [Recovered/Resolved]
  - Chronic obstructive pulmonary disease [Not Recovered/Not Resolved]
  - Memory impairment [Not Recovered/Not Resolved]
  - Muscle rigidity [Not Recovered/Not Resolved]
  - Prostatomegaly [Not Recovered/Not Resolved]
  - Weight fluctuation [Recovered/Resolved]
  - Fall [Not Recovered/Not Resolved]
  - Hypoaesthesia [Not Recovered/Not Resolved]
  - Fatigue [Not Recovered/Not Resolved]
  - Abnormal dreams [Unknown]
  - Nightmare [Unknown]
  - Gait disturbance [Recovering/Resolving]
  - Hallucination [Recovered/Resolved]
  - Stoma site discharge [Recovered/Resolved]
  - Stoma site erythema [Recovered/Resolved]
  - Bradykinesia [Not Recovered/Not Resolved]
  - Polyneuropathy [Not Recovered/Not Resolved]
  - Stoma site discharge [Recovered/Resolved]
  - Medical device site dryness [Not Recovered/Not Resolved]
  - Adverse event [Recovered/Resolved]
  - Freezing phenomenon [Not Recovered/Not Resolved]
  - Stoma site discharge [Recovering/Resolving]
  - Dyskinesia [Recovered/Resolved]
  - Stoma site erythema [Recovering/Resolving]
  - On and off phenomenon [Recovering/Resolving]
  - Dyskinesia [Not Recovered/Not Resolved]
  - Haemoglobin decreased [Not Recovered/Not Resolved]
  - Urinary bladder haemorrhage [Recovered/Resolved]
  - Urinary tract infection [Recovered/Resolved]
  - Fibroma [Not Recovered/Not Resolved]
  - Weight increased [Recovered/Resolved]
  - Stoma site irritation [Not Recovered/Not Resolved]
  - Muscle spasms [Not Recovered/Not Resolved]
  - Appetite disorder [Recovered/Resolved]
  - Weight increased [Recovered/Resolved]

NARRATIVE: CASE EVENT DATE: 20180101
